FAERS Safety Report 10762687 (Version 1)
Quarter: 2015Q1

REPORT INFORMATION
  Report Type: Spontaneous
  Country: BR (occurrence: BR)
  Receive Date: 20150204
  Receipt Date: 20150204
  Transmission Date: 20150721
  Serious: Yes (Other)
  Sender: FDA-Public Use
  Company Number: BR-SA-2014SA056890

PATIENT
  Sex: Female
  Weight: 62 kg

DRUGS (1)
  1. CLEXANE [Suspect]
     Active Substance: ENOXAPARIN SODIUM
     Indication: HYPERCOAGULATION
     Dosage: ROUTE: SKIN OF BELLY. THERAPY STOP DATE:UPTO 6 WEEKS AFTER DELIVERY
     Dates: start: 20140416, end: 201501

REACTIONS (4)
  - Caesarean section [Unknown]
  - Pain in extremity [Unknown]
  - Back pain [Unknown]
  - Exposure during pregnancy [Unknown]

NARRATIVE: CASE EVENT DATE: 2014
